FAERS Safety Report 25587282 (Version 1)
Quarter: 2025Q3

REPORT INFORMATION
  Report Type: Spontaneous
  Country: US (occurrence: None)
  Receive Date: 20250721
  Receipt Date: 20250721
  Transmission Date: 20251021
  Serious: Yes (Hospitalization)
  Sender: FDA-CTU
  Company Number: None

PATIENT
  Age: 41 Year
  Sex: Female

DRUGS (10)
  1. TACROLIMUS [Suspect]
     Active Substance: TACROLIMUS
     Indication: Renal transplant
     Dosage: FREQUENCY : TWICE A DAY;?
     Route: 048
     Dates: start: 20250623
  2. MYCOPHENOLIC ACID [Suspect]
     Active Substance: MYCOPHENOLIC ACID
     Indication: Renal transplant
     Dosage: FREQUENCY : TWICE A DAY;?
     Route: 048
     Dates: start: 20250623
  3. PREVYMIS [Concomitant]
     Active Substance: LETERMOVIR
  4. VALACYCLOVIR [Concomitant]
     Active Substance: VALACYCLOVIR HYDROCHLORIDE
  5. TORSEMIDE [Concomitant]
     Active Substance: TORSEMIDE
  6. CARVEDILOL [Concomitant]
     Active Substance: CARVEDILOL
  7. Atovaquone 750mg/5ml [Concomitant]
  8. PREDNISONE [Concomitant]
     Active Substance: PREDNISONE
  9. CEPHALEXIN [Concomitant]
     Active Substance: CEPHALEXIN
  10. ASPIRIN [Concomitant]
     Active Substance: ASPIRIN

REACTIONS (2)
  - Infection [None]
  - Haemoglobin decreased [None]

NARRATIVE: CASE EVENT DATE: 20250701
